FAERS Safety Report 25406675 (Version 1)
Quarter: 2025Q2

REPORT INFORMATION
  Report Type: Report from Study
  Country: CA (occurrence: CA)
  Receive Date: 20250606
  Receipt Date: 20250606
  Transmission Date: 20250716
  Serious: Yes (Hospitalization)
  Sender: NORDIC PHARMA
  Company Number: CA-NORDICGR-062810

PATIENT
  Sex: Male

DRUGS (2)
  1. METHOTREXATE [Interacting]
     Active Substance: METHOTREXATE
     Indication: Product used for unknown indication
     Route: 065
  2. RINVOQ [Interacting]
     Active Substance: UPADACITINIB
     Indication: Rheumatoid arthritis
     Route: 048

REACTIONS (2)
  - Drug interaction [Unknown]
  - Rheumatoid arthritis [Unknown]
